FAERS Safety Report 5637266-6 (Version None)
Quarter: 2008Q1

REPORT INFORMATION
  Report Type: 
  Country: None (occurrence: None)
  Receive Date: 20080225
  Receipt Date: 20071210
  Transmission Date: 20080703
  Serious: No
  Sender: FDA-Public Use
  Company Number: US-BRISTOL-MYERS SQUIBB COMPANY-14009609

PATIENT
  Age: 68 Year
  Sex: Male
  Weight: 73 kg

DRUGS (2)
  1. KENALOG [Suspect]
     Indication: ARTHRITIS
     Dates: start: 20071207
  2. KENALOG [Suspect]
     Indication: ARTHRALGIA
     Dates: start: 20071207

REACTIONS (1)
  - RASH [None]
